FAERS Safety Report 9690979 (Version 3)
Quarter: 2014Q1

REPORT INFORMATION
  Report Type: Report from Study
  Country: ID (occurrence: ID)
  Receive Date: 20131115
  Receipt Date: 20140107
  Transmission Date: 20141002
  Serious: No
  Sender: FDA-Public Use
  Company Number: ID-ROCHE-1302233

PATIENT
  Age: 49 Year
  Sex: Female

DRUGS (1)
  1. XENICAL [Suspect]
     Indication: PRODUCT USED FOR UNKNOWN INDICATION
     Route: 048
     Dates: start: 201311

REACTIONS (1)
  - Haematochezia [Recovered/Resolved]
